FAERS Safety Report 4438721-7 (Version None)
Quarter: 2004Q3

REPORT INFORMATION
  Report Type: 
  Country: None (occurrence: None)
  Receive Date: 20040830
  Receipt Date: 20040830
  Transmission Date: 20050211
  Serious: Yes (Other)
  Sender: FDA-Public Use
  Company Number: None

PATIENT
  Age: 30 Year
  Sex: Female
  Weight: 58.9676 kg

DRUGS (2)
  1. LEXAPRO [Suspect]
     Indication: ANXIETY
     Dosage: 1 A DAY ORAL
     Route: 048
     Dates: start: 20040201, end: 20040601
  2. LEXAPRO [Suspect]
     Indication: OBSESSIVE-COMPULSIVE DISORDER
     Dosage: 1 A DAY ORAL
     Route: 048
     Dates: start: 20040201, end: 20040601

REACTIONS (6)
  - APATHY [None]
  - ASTHENIA [None]
  - CRYING [None]
  - FEELING OF DESPAIR [None]
  - PARAESTHESIA [None]
  - SELF-INJURIOUS IDEATION [None]
